FAERS Safety Report 8460738-6 (Version None)
Quarter: 2012Q2

REPORT INFORMATION
  Report Type: 
  Country: None (occurrence: None)
  Receive Date: 20120622
  Receipt Date: 20120614
  Transmission Date: 20120825
  Serious: Yes (Other)
  Sender: FDA-Public Use
  Company Number: US-ELI_LILLY_AND_COMPANY-US201206004806

PATIENT
  Sex: Female

DRUGS (12)
  1. ALBUTEROL [Concomitant]
     Indication: ASTHMA
     Dosage: 90 UG, UNKNOWN
     Route: 055
  2. FORMOTEROL W/MOMETASONE [Concomitant]
     Indication: ASTHMA
     Dosage: 1 DF, UNK
  3. ATIVAN [Concomitant]
     Indication: MENTAL DISORDER
     Dosage: 25 MG, UNK
  4. CELEXA [Concomitant]
     Indication: MENTAL DISORDER
     Dosage: 40 MG, UNK
  5. PRINIVIL [Concomitant]
     Indication: HYPERTENSION
     Dosage: 20 MG, UNK
  6. NASONEX [Concomitant]
     Indication: ASTHMA
     Dosage: 50 UG, UNK
  7. BYETTA [Suspect]
     Route: 058
  8. BYETTA [Suspect]
     Indication: TYPE 2 DIABETES MELLITUS
     Route: 058
  9. SPRINTEC [Concomitant]
     Indication: MENOMETRORRHAGIA
     Dosage: UNK
  10. MULTI-VITAMIN [Concomitant]
     Dosage: UNK
  11. PRAVACHOL [Concomitant]
     Dosage: 10 MG, UNK
  12. VICTOZA [Concomitant]
     Dosage: UNK

REACTIONS (1)
  - LOSS OF CONSCIOUSNESS [None]
